FAERS Safety Report 18583485 (Version 6)
Quarter: 2021Q3

REPORT INFORMATION
  Report Type: Other
  Country: US (occurrence: US)
  Receive Date: 20201207
  Receipt Date: 20210930
  Transmission Date: 20211014
  Serious: Yes (Other)
  Sender: FDA-Public Use
  Company Number: US-ROCHE-2722451

PATIENT
  Sex: Male

DRUGS (4)
  1. ACTEMRA [Suspect]
     Active Substance: TOCILIZUMAB
     Indication: POLYMYALGIA RHEUMATICA
     Dosage: INFUSE 340MG INTRAVENOUSLY INITIAL DOSE
     Route: 042
  2. ACTEMRA [Suspect]
     Active Substance: TOCILIZUMAB
     Dosage: INFUSE 340MG INTRAVENOUSLY INITIAL DOSE
     Route: 042
  3. ACTEMRA [Suspect]
     Active Substance: TOCILIZUMAB
     Indication: POLYMYALGIA RHEUMATICA
     Dosage: INJECT 162 MG SUBCUTANEOUSLY ONCE WEEKLY
     Route: 058
  4. ACTEMRA [Suspect]
     Active Substance: TOCILIZUMAB

REACTIONS (12)
  - Off label use [Unknown]
  - Illness [Unknown]
  - Malaise [Not Recovered/Not Resolved]
  - Product prescribing error [Unknown]
  - Glycosylated haemoglobin decreased [Unknown]
  - Diabetes mellitus [Unknown]
  - Pain [Unknown]
  - Blood glucose increased [Unknown]
  - Memory impairment [Unknown]
  - Back disorder [Unknown]
  - Back disorder [Not Recovered/Not Resolved]
  - Back pain [Unknown]
